FAERS Safety Report 23007635 (Version 2)
Quarter: 2024Q3

REPORT INFORMATION
  Report Type: Report from Study
  Country: DE (occurrence: DE)
  Receive Date: 20230929
  Receipt Date: 20240705
  Transmission Date: 20241017
  Serious: Yes (Hospitalization)
  Sender: SANDOZ
  Company Number: DE-002147023-NVSC2022DE000519

PATIENT
  Age: 67 Year
  Sex: Male
  Weight: 62.6 kg

DRUGS (39)
  1. AZACITIDINE [Suspect]
     Active Substance: AZACITIDINE
     Indication: Acute myeloid leukaemia
     Dosage: 134.6 MG, QD
     Route: 058
     Dates: start: 20211223
  2. VENETOCLAX [Suspect]
     Active Substance: VENETOCLAX
     Indication: Acute myeloid leukaemia
     Dosage: 10 MG, QD
     Route: 048
     Dates: start: 20211223
  3. ALLOPURINOL [Concomitant]
     Active Substance: ALLOPURINOL
     Indication: Prophylaxis
     Dosage: 300 MG, QD
     Route: 048
     Dates: start: 20211218, end: 20220111
  4. CANDESARTAN [Concomitant]
     Active Substance: CANDESARTAN
     Indication: Hypertension
     Dosage: 8 MG, BID
     Route: 048
     Dates: start: 20220111
  5. FRESUBIN [Concomitant]
     Active Substance: AMINO ACIDS\DEXTROSE\ELECTROLYTES NOS\SOYBEAN OIL\VITAMINS
     Indication: Weight decreased
     Dosage: UNK
     Route: 065
     Dates: start: 20211230, end: 20220128
  6. GRANISETRON [Concomitant]
     Active Substance: GRANISETRON
     Indication: Prophylaxis of nausea and vomiting
     Dosage: 2 MG, QD
     Route: 048
     Dates: start: 20211223, end: 20220105
  7. HYDROCHLOROTHIAZIDE [Concomitant]
     Active Substance: HYDROCHLOROTHIAZIDE
     Indication: Oedema peripheral
     Dosage: 25 MG
     Route: 048
     Dates: start: 20211229, end: 20220123
  8. IBUPROFEN [Concomitant]
     Active Substance: IBUPROFEN
     Indication: Osteomyelitis
     Dosage: 600 MG, TID
     Route: 048
     Dates: start: 20211230, end: 20220110
  9. IBUPROFEN [Concomitant]
     Active Substance: IBUPROFEN
     Indication: Pain in extremity
  10. INNOHEP [Concomitant]
     Active Substance: TINZAPARIN SODIUM
     Indication: Thrombosis prophylaxis
     Dosage: 4500 IU, QD
     Route: 058
     Dates: start: 20211218, end: 20220222
  11. INNOHEP [Concomitant]
     Active Substance: TINZAPARIN SODIUM
     Dosage: UNK
     Route: 065
     Dates: start: 20211218, end: 20220221
  12. KCL [Concomitant]
     Active Substance: POTASSIUM CHLORIDE
     Indication: Hypokalaemia
     Dosage: 7,45% CONTIN
     Route: 042
     Dates: start: 20220107, end: 20220109
  13. KCL [Concomitant]
     Active Substance: POTASSIUM CHLORIDE
     Indication: Hypertension
     Dosage: UNK
     Route: 065
     Dates: start: 20220107, end: 20220121
  14. KCL [Concomitant]
     Active Substance: POTASSIUM CHLORIDE
     Dosage: UNK
     Route: 065
     Dates: start: 20220127, end: 20220129
  15. Kalinor [Concomitant]
     Indication: Prophylaxis
     Dosage: 1200 MG, QD
     Route: 048
     Dates: start: 20220103, end: 20220107
  16. Kalinor [Concomitant]
     Indication: Hypertension
     Dosage: UNK
     Route: 065
     Dates: start: 20220115, end: 20220115
  17. Kalinor [Concomitant]
     Dosage: UNK
     Route: 065
     Dates: start: 20220117, end: 20220117
  18. Kalinor [Concomitant]
     Dosage: UNK
     Route: 065
     Dates: start: 20220125, end: 20220127
  19. Kalinor-retard [Concomitant]
     Indication: Hypokalaemia
     Dosage: UNK
     Route: 065
     Dates: start: 20220103, end: 20220107
  20. Kalinor-retard [Concomitant]
     Indication: Prophylaxis
     Dosage: UNK
     Route: 065
     Dates: start: 20220115, end: 20220115
  21. KONAKION [Concomitant]
     Active Substance: PHYTONADIONE
     Indication: Thrombosis prophylaxis
     Dosage: 10 MG, QD
     Route: 042
     Dates: start: 20220105, end: 20220107
  22. LASIX [Concomitant]
     Active Substance: FUROSEMIDE
     Indication: Hypervolaemia
     Dosage: 20 MG, QD
     Route: 042
     Dates: start: 20220121, end: 20220127
  23. MEROPENEM [Concomitant]
     Active Substance: MEROPENEM
     Indication: Osteomyelitis
     Dosage: 1 UG, TID
     Route: 042
     Dates: start: 20211228, end: 20220120
  24. MEROPENEM [Concomitant]
     Active Substance: MEROPENEM
     Dosage: UNK
     Route: 041
     Dates: start: 20211228, end: 20220120
  25. MEROPENEM [Concomitant]
     Active Substance: MEROPENEM
     Indication: Febrile neutropenia
     Dosage: UNK
     Route: 065
  26. MOXIFLOXACIN [Concomitant]
     Active Substance: MOXIFLOXACIN
     Indication: Chlamydial infection
     Dosage: 400 MG, QD
     Route: 048
     Dates: start: 20211229, end: 20220120
  27. MOXIFLOXACIN [Concomitant]
     Active Substance: MOXIFLOXACIN
     Indication: Mycoplasma infection
  28. NOXAFIL [Concomitant]
     Active Substance: POSACONAZOLE
     Indication: Antifungal prophylaxis
     Dosage: 300 MG, QD
     Route: 048
     Dates: start: 20220112
  29. NOXAFIL [Concomitant]
     Active Substance: POSACONAZOLE
     Indication: Prophylaxis
  30. OLIMEL [Concomitant]
     Active Substance: AMINO ACIDS\DEXTROSE\SOYBEAN OIL
     Indication: Supplementation therapy
     Dosage: UNK
     Route: 065
     Dates: start: 20220126, end: 20220220
  31. PANTOPRAZOLE SODIUM [Concomitant]
     Active Substance: PANTOPRAZOLE SODIUM
     Indication: Gastrointestinal disorder prophylaxis
     Dosage: 40 MG, QD
     Route: 048
     Dates: start: 20211230
  32. ACETAMINOPHEN [Concomitant]
     Active Substance: ACETAMINOPHEN
     Indication: Febrile neutropenia
     Dosage: UNK
     Route: 065
     Dates: start: 20211225, end: 20220122
  33. PIPERACILLIN SODIUM\TAZOBACTAM SODIUM [Concomitant]
     Active Substance: PIPERACILLIN SODIUM\TAZOBACTAM SODIUM
     Indication: Febrile neutropenia
     Dosage: 4.5 UG, TID
     Route: 048
     Dates: start: 20211224, end: 20211228
  34. PIPERACILLIN SODIUM\TAZOBACTAM SODIUM [Concomitant]
     Active Substance: PIPERACILLIN SODIUM\TAZOBACTAM SODIUM
     Indication: Infection prophylaxis
  35. PIRITRAMIDA [Concomitant]
     Indication: Abdominal pain
     Dosage: UNK
     Route: 065
     Dates: start: 20220125, end: 20220125
  36. POSACONAZOLE [Concomitant]
     Active Substance: POSACONAZOLE
     Indication: Antifungal prophylaxis
     Dosage: UNK
     Route: 048
     Dates: start: 20220112
  37. RINGERS SOLUTION [Concomitant]
     Active Substance: CALCIUM CHLORIDE\POTASSIUM CHLORIDE\SODIUM CHLORIDE
     Indication: Hypokalaemia
     Dosage: UNK, SOLUTION
     Route: 065
     Dates: start: 20220105, end: 20220107
  38. ZOPICLONE [Concomitant]
     Active Substance: ZOPICLONE
     Indication: Insomnia
     Dosage: UNK
     Route: 048
     Dates: start: 20220107, end: 20220107
  39. ZOPICLONE [Concomitant]
     Active Substance: ZOPICLONE
     Indication: Insomnia
     Dosage: 3.75 MG, PRN
     Route: 048
     Dates: start: 20220107, end: 20220107

REACTIONS (3)
  - Atypical pneumonia [Recovered/Resolved]
  - General physical health deterioration [Recovered/Resolved with Sequelae]
  - Febrile neutropenia [Recovered/Resolved]

NARRATIVE: CASE EVENT DATE: 20211231
